FAERS Safety Report 6046741-4 (Version None)
Quarter: 2009Q1

REPORT INFORMATION
  Report Type: 
  Country: None (occurrence: None)
  Receive Date: 20090122
  Receipt Date: 20090112
  Transmission Date: 20090719
  Serious: Yes (Other)
  Sender: FDA-Public Use
  Company Number: CN-PFIZER INC-2009155658

PATIENT

DRUGS (3)
  1. SULPERAZON [Suspect]
     Indication: LUNG INFECTION
     Dosage: 3 G, UNK
     Route: 042
     Dates: start: 20090105, end: 20090105
  2. GENERAL NUTRIENTS [Concomitant]
     Dosage: UNK
     Route: 042
  3. MULTI-VITAMINS [Concomitant]
     Dosage: UNK
     Route: 042

REACTIONS (1)
  - INFUSION RELATED REACTION [None]
